FAERS Safety Report 20643832 (Version 1)
Quarter: 2022Q1

REPORT INFORMATION
  Report Type: Spontaneous
  Country: US (occurrence: None)
  Receive Date: 20220325
  Receipt Date: 20220325
  Transmission Date: 20220423
  Serious: Yes (Other)
  Sender: FDA-Public Use
  Company Number: None

PATIENT
  Age: 45 Year
  Sex: Male

DRUGS (11)
  1. AMBRISENTAN [Suspect]
     Active Substance: AMBRISENTAN
     Indication: Pulmonary arterial hypertension
     Dosage: FREQUENCY : DAILY;?
     Route: 048
     Dates: start: 20211206, end: 20220311
  2. TADALAFIL [Concomitant]
     Active Substance: TADALAFIL
  3. TRAZODONE [Concomitant]
     Active Substance: TRAZODONE HYDROCHLORIDE
  4. LEXAPRO [Concomitant]
     Active Substance: ESCITALOPRAM OXALATE
  5. HYDROCHLOROTHIAZIDE [Concomitant]
     Active Substance: HYDROCHLOROTHIAZIDE
  6. METFORMIN [Concomitant]
     Active Substance: METFORMIN HYDROCHLORIDE
  7. Humulin NPH KwikPen [Concomitant]
  8. LIPITOR [Concomitant]
     Active Substance: ATORVASTATIN CALCIUM
  9. TORSEMIDE [Concomitant]
     Active Substance: TORSEMIDE
  10. TUMS [Concomitant]
     Active Substance: CALCIUM CARBONATE
  11. METOPROLOL [Concomitant]
     Active Substance: METOPROLOL

REACTIONS (5)
  - Oedema [None]
  - Cardiac dysfunction [None]
  - Pulmonary arterial pressure increased [None]
  - Pulmonary vascular resistance abnormality [None]
  - Therapy cessation [None]

NARRATIVE: CASE EVENT DATE: 20220311
